FAERS Safety Report 7270385-X (Version None)
Quarter: 2011Q1

REPORT INFORMATION
  Report Type: 
  Country: None (occurrence: None)
  Receive Date: 20110202
  Receipt Date: 20110120
  Transmission Date: 20110831
  Serious: Yes (Hospitalization)
  Sender: FDA-Public Use
  Company Number: DE-ELI_LILLY_AND_COMPANY-DE201101005462

PATIENT
  Age: 69 Year
  Sex: Female

DRUGS (3)
  1. GEMZAR [Suspect]
     Indication: NON-SMALL CELL LUNG CANCER
     Dosage: 1250 MG/M2/SQ. METER, UNKNOWN
     Route: 042
     Dates: start: 20100901, end: 20101201
  2. CISPLATIN [Concomitant]
     Indication: CHEMOTHERAPY
     Dates: start: 20091101
  3. CARBOPLATIN [Concomitant]
     Indication: NON-SMALL CELL LUNG CANCER
     Dosage: AUC 5, UNKNOWN
     Route: 042
     Dates: start: 20100901

REACTIONS (2)
  - SYSTEMIC LUPUS ERYTHEMATOSUS [None]
  - LEUKOPENIA [None]
